FAERS Safety Report 4960358-1 (Version None)
Quarter: 2006Q2

REPORT INFORMATION
  Report Type: 
  Country: None (occurrence: None)
  Receive Date: 20060403
  Receipt Date: 20060328
  Transmission Date: 20061013
  Serious: Yes (Death)
  Sender: FDA-Public Use
  Company Number: PHNR2006AU00623

PATIENT
  Age: 67 Year
  Sex: Female

DRUGS (11)
  1. MAXOLON [Concomitant]
     Indication: VOMITING
     Dosage: 40 MG DAILY
     Route: 048
     Dates: start: 19971002, end: 19971012
  2. DEXAMETHASONE TAB [Concomitant]
     Indication: VOMITING
     Dosage: 2 MG DAILY
     Dates: start: 19971003, end: 19971010
  3. CIPROFLOXACIN [Suspect]
     Indication: SEPSIS
     Dosage: 1.5 G DAILY
     Dates: start: 19970929, end: 19971008
  4. MS CONTIN [Suspect]
     Indication: PAIN
     Dosage: 40 MG DAILY
     Route: 048
     Dates: start: 19970929, end: 19971008
  5. SLOW-K [Suspect]
     Dosage: 2 X DAILY (DOSE UNSPECIFIED)
     Dates: start: 19970929, end: 19971008
  6. COLOXYL WITH SENNA [Suspect]
     Indication: CONSTIPATION
     Dosage: 4 X  UNSPECIFIED DOSE
     Route: 048
     Dates: start: 19970929, end: 19971008
  7. DOTHIEPIN ^COX^ [Suspect]
     Dosage: 75 MG DAILY
     Dates: start: 19970919, end: 19971008
  8. ACETAMINOPHEN [Suspect]
     Indication: PAIN
     Dosage: 4 G DAILY
     Route: 048
     Dates: start: 19970930, end: 19971008
  9. GASTRO GEL [Suspect]
     Indication: VOMITING
     Dosage: 3 X DOSE UNSPECIFIED
     Dates: start: 19971006, end: 19971009
  10. XYLOCAINE [Suspect]
     Indication: SOFT TISSUE DISORDER
     Dosage: 3 X DOSE UNSPECIFIED
     Dates: start: 19971006, end: 19971009
  11. RITALIN [Suspect]
     Dosage: 10 MG DAILY
     Route: 048
     Dates: start: 19971007, end: 19971008

REACTIONS (3)
  - CONFUSIONAL STATE [None]
  - HALLUCINATION [None]
  - HALLUCINATION, VISUAL [None]
